FAERS Safety Report 15665140 (Version 1)
Quarter: 2018Q4

REPORT INFORMATION
  Report Type: Spontaneous
  Country: FR (occurrence: FR)
  Receive Date: 20181128
  Receipt Date: 20181128
  Transmission Date: 20190205
  Serious: Yes (Other)
  Sender: FDA-Public Use
  Company Number: FR-SA-2018SA159425

PATIENT
  Age: 55 Year
  Sex: Male
  Weight: 84 kg

DRUGS (7)
  1. XENETIX [Concomitant]
     Active Substance: IOBITRIDOL
     Indication: COMPUTERISED TOMOGRAM
     Dosage: 130 ML, 1X
     Route: 065
     Dates: start: 20180421, end: 20180421
  2. FENTANYL. [Concomitant]
     Active Substance: FENTANYL
     Indication: PAIN
     Dosage: UNK, UNK
     Route: 042
     Dates: start: 20180421, end: 20180423
  3. ZYVOXID [Suspect]
     Active Substance: LINEZOLID
     Indication: INFECTION
     Dosage: 1200 MG, QD, SOLUTION POUR PERFUSION
     Route: 048
     Dates: start: 20180422, end: 20180423
  4. NORADRENALINE [NOREPINEPHRINE] [Concomitant]
     Active Substance: NOREPINEPHRINE
     Dosage: UNK, UNK
     Route: 042
     Dates: start: 20180421, end: 20180423
  5. LOVENOX [Suspect]
     Active Substance: ENOXAPARIN SODIUM
     Indication: THROMBOSIS PROPHYLAXIS
     Dosage: 1 DF, QD
     Route: 058
     Dates: start: 20180422, end: 20180422
  6. MIDAZOLAM [Concomitant]
     Active Substance: MIDAZOLAM HYDROCHLORIDE
     Indication: SEDATION
     Dosage: UNK, UNK
     Route: 042
     Dates: start: 20180421, end: 20180423
  7. TRACRIUM [Concomitant]
     Active Substance: ATRACURIUM BESYLATE
     Indication: ANAESTHESIA
     Dosage: UNK, UNK (INCONNUE)
     Route: 042
     Dates: start: 20180421, end: 20180422

REACTIONS (1)
  - Rash [Recovered/Resolved]

NARRATIVE: CASE EVENT DATE: 20180423
